FAERS Safety Report 25995819 (Version 5)
Quarter: 2025Q4

REPORT INFORMATION
  Report Type: Report from Study
  Country: US (occurrence: US)
  Receive Date: 20251104
  Receipt Date: 20251211
  Transmission Date: 20260118
  Serious: Yes (Hospitalization)
  Sender: TRAVERE THERAPEUTICS
  Company Number: US-TRAVERE-2025TVT02059

PATIENT
  Age: 23 Year
  Sex: Female
  Weight: 85 kg

DRUGS (12)
  1. FILSPARI [Suspect]
     Active Substance: SPARSENTAN
     Indication: IgA nephropathy
     Route: 048
     Dates: start: 20250116, end: 20250131
  2. FILSPARI [Suspect]
     Active Substance: SPARSENTAN
     Route: 048
     Dates: start: 20250201, end: 20251006
  3. FILSPARI [Suspect]
     Active Substance: SPARSENTAN
     Route: 048
     Dates: start: 20251021
  4. ATOVAQUONE [Concomitant]
     Active Substance: ATOVAQUONE
  5. JARDIANCE [Concomitant]
     Active Substance: EMPAGLIFLOZIN
  6. PREDNISONE [Concomitant]
     Active Substance: PREDNISONE
  7. SERTRALINE [Concomitant]
     Active Substance: SERTRALINE HYDROCHLORIDE
  8. VITAMIN D3 [Concomitant]
     Active Substance: CHOLECALCIFEROL
  9. ESTRADIOL [Concomitant]
     Active Substance: ESTRADIOL
  10. FUROSEMIDE [Concomitant]
     Active Substance: FUROSEMIDE
  11. PROGESTERONE [Concomitant]
     Active Substance: PROGESTERONE
  12. LEVOTHYROXINE [Concomitant]
     Active Substance: LEVOTHYROXINE

REACTIONS (11)
  - Renal failure [Recovering/Resolving]
  - Blood potassium increased [Recovering/Resolving]
  - Swelling [Recovering/Resolving]
  - Hypertension [Recovering/Resolving]
  - Chest pain [Recovering/Resolving]
  - Headache [Recovered/Resolved]
  - Contusion [Unknown]
  - Generalised oedema [Unknown]
  - Oedema peripheral [Unknown]
  - Ear discomfort [Unknown]
  - Hyperhidrosis [Unknown]

NARRATIVE: CASE EVENT DATE: 20251001
